FAERS Safety Report 7785675-1 (Version None)
Quarter: 2011Q3

REPORT INFORMATION
  Report Type: 
  Country: None (occurrence: None)
  Receive Date: 20110929
  Receipt Date: 20110929
  Transmission Date: 20111222
  Serious: Yes (Death, Other)
  Sender: FDA-Public Use
  Company Number: None

PATIENT
  Age: 82 Year
  Sex: Female
  Weight: 39.916 kg

DRUGS (2)
  1. PROPOFOL [Suspect]
     Indication: PAIN
     Route: 041
  2. FENTANYL [Concomitant]
     Route: 041

REACTIONS (7)
  - WEIGHT INCREASED [None]
  - HEART RATE IRREGULAR [None]
  - HYPOPNOEA [None]
  - SEPSIS [None]
  - OEDEMA [None]
  - CONTRAINDICATION TO MEDICAL TREATMENT [None]
  - GALLBLADDER OPERATION [None]
